FAERS Safety Report 21738633 (Version 1)
Quarter: 2022Q4

REPORT INFORMATION
  Report Type: Spontaneous
  Country: US (occurrence: US)
  Receive Date: 20221216
  Receipt Date: 20221216
  Transmission Date: 20230113
  Serious: No
  Sender: FDA-Public Use
  Company Number: US-ORGANON-O2212USA000157

PATIENT
  Age: 31 Year
  Sex: Male

DRUGS (8)
  1. PREGNYL [Suspect]
     Active Substance: CHORIOGONADOTROPIN ALFA
     Indication: Muscle building therapy
     Dosage: UNK, BIW
     Route: 030
  2. WATER FOR INJECTION [Suspect]
     Active Substance: WATER
     Dosage: UNK
  3. DANAZOL [Concomitant]
     Active Substance: DANAZOL
     Indication: Muscle building therapy
     Dosage: UNK, QD
     Route: 048
  4. ANASTROZOLE [Concomitant]
     Active Substance: ANASTROZOLE
     Indication: Muscle building therapy
     Dosage: UNK
  5. PRASTERONE [Concomitant]
     Active Substance: PRASTERONE
     Indication: Muscle building therapy
     Dosage: UNK
  6. CLOMIPHENE CITRATE [Concomitant]
     Active Substance: CLOMIPHENE CITRATE
     Indication: Muscle building therapy
     Dosage: UNK
  7. VITAMIN D3 [Concomitant]
     Active Substance: CHOLECALCIFEROL
     Indication: Muscle building therapy
     Dosage: IN SESAME OIL 100000 UNITS/ML, QW
     Route: 058
  8. SESAME OIL [Concomitant]
     Active Substance: SESAME OIL
     Indication: Muscle building therapy
     Dosage: UNK UNK, QW
     Route: 058

REACTIONS (2)
  - Product use in unapproved indication [Unknown]
  - Product prescribing issue [Unknown]
